FAERS Safety Report 24162814 (Version 2)
Quarter: 2025Q1

REPORT INFORMATION
  Report Type: Spontaneous
  Country: US (occurrence: US)
  Receive Date: 20240801
  Receipt Date: 20250220
  Transmission Date: 20250409
  Serious: No
  Sender: PFIZER
  Company Number: US-PFIZER INC-PV202400084599

PATIENT
  Age: 71 Year
  Sex: Female

DRUGS (1)
  1. TUKYSA [Suspect]
     Active Substance: TUCATINIB
     Dosage: 1 TABLET TWICE DAILY, TAKE ONE 150MG TABLET BY MOUTH TWICE DAILY
     Route: 048

REACTIONS (1)
  - Nasopharyngitis [Unknown]
